FAERS Safety Report 5157522-8 (Version None)
Quarter: 2006Q4

REPORT INFORMATION
  Report Type: 
  Country: None (occurrence: None)
  Receive Date: 20061127
  Receipt Date: 20061030
  Transmission Date: 20070319
  Serious: Yes (Other)
  Sender: FDA-Public Use
  Company Number: JP-GLAXOSMITHKLINE-B0445001A

PATIENT
  Age: 77 Year
  Sex: Male
  Weight: 58 kg

DRUGS (23)
  1. PAXIL [Suspect]
     Indication: DEPRESSION
     Dosage: 10MG PER DAY
     Route: 048
     Dates: end: 20061012
  2. ASPIRIN [Concomitant]
     Route: 048
  3. BENET [Concomitant]
     Route: 048
  4. UNKNOWN NAME [Concomitant]
     Route: 048
  5. UNKNOWN NAME [Concomitant]
     Route: 048
  6. UNKNOWN NAME [Concomitant]
     Route: 048
  7. UNKNOWN NAME [Concomitant]
  8. LYSOZYME HYDROCHLORIDE [Concomitant]
  9. CHLOPHEDRIN S [Concomitant]
     Route: 048
  10. ANTOBRON [Concomitant]
     Route: 048
  11. TROXSIN [Concomitant]
     Route: 048
  12. HOKUNALIN [Concomitant]
     Route: 062
  13. CINAL [Concomitant]
     Route: 048
  14. NEUROVITAN [Concomitant]
     Route: 048
  15. JUVELA [Concomitant]
  16. ADALAT [Concomitant]
     Route: 048
  17. DILTIAZEM HCL [Concomitant]
     Route: 048
  18. LANSOPRAZOLE [Concomitant]
     Route: 048
  19. MYSLEE [Concomitant]
     Route: 048
  20. CONSTAN [Concomitant]
     Route: 048
  21. BLOPRESS [Concomitant]
     Route: 048
  22. CEFSPAN [Concomitant]
     Route: 048
  23. DIURETIC [Concomitant]
     Dates: start: 20061009

REACTIONS (5)
  - BLOOD CHLORIDE DECREASED [None]
  - BLOOD POTASSIUM DECREASED [None]
  - BLOOD SODIUM DECREASED [None]
  - INAPPROPRIATE ANTIDIURETIC HORMONE SECRETION [None]
  - URINE OSMOLARITY INCREASED [None]
